FAERS Safety Report 6024607-3 (Version None)
Quarter: 2008Q4

REPORT INFORMATION
  Report Type: 
  Country: None (occurrence: None)
  Receive Date: 20081231
  Receipt Date: 20081126
  Transmission Date: 20090506
  Serious: No
  Sender: FDA-Public Use
  Company Number: US-BRISTOL-MYERS SQUIBB COMPANY-14421523

PATIENT
  Age: 37 Year
  Sex: Female
  Weight: 126 kg

DRUGS (5)
  1. ORENCIA [Suspect]
     Indication: SPINAL DISORDER
     Dates: start: 20080201
  2. IMURAN [Concomitant]
  3. PREDNISONE [Concomitant]
  4. HYDROCHLOROTHIAZIDE [Concomitant]
  5. OXYCODONE [Concomitant]

REACTIONS (1)
  - OPTIC NEURITIS [None]
